FAERS Safety Report 12566264 (Version 1)
Quarter: 2016Q3

REPORT INFORMATION
  Report Type: Spontaneous
  Country: CA (occurrence: CA)
  Receive Date: 20160718
  Receipt Date: 20160718
  Transmission Date: 20161109
  Serious: Yes (Other)
  Sender: FDA-Public Use
  Company Number: CA-HQ SPECIALTY-CA-2016INT000549

PATIENT
  Age: 74 Year
  Sex: Female

DRUGS (8)
  1. METHOTREXATE SODIUM. [Suspect]
     Active Substance: METHOTREXATE SODIUM
     Dosage: 7 DOSAGE FORM, 1 IN 1 W
     Route: 048
     Dates: start: 2014, end: 2014
  2. PLAQUENIL                          /00072602/ [Suspect]
     Active Substance: HYDROXYCHLOROQUINE DIPHOSPHATE
     Dosage: 2 DOSAGE FORM,1 IN 1 D
     Dates: start: 20150218, end: 201505
  3. METHOTREXATE SODIUM. [Suspect]
     Active Substance: METHOTREXATE SODIUM
     Dosage: 8 DOSAGE FORM, 1 IN 1 W
     Route: 048
     Dates: start: 20141125, end: 201502
  4. PLAQUENIL                          /00072602/ [Suspect]
     Active Substance: HYDROXYCHLOROQUINE DIPHOSPHATE
     Indication: PRODUCT USED FOR UNKNOWN INDICATION
     Dosage: 2 TABS DAILY FROM MONDAY TO FRIDAY, 1 TAB DAILY ON
     Dates: start: 20141125
  5. ARAVA [Suspect]
     Active Substance: LEFLUNOMIDE
     Indication: RHEUMATOID ARTHRITIS
     Dosage: VARIOUS (1 D)
     Dates: start: 20150218
  6. FOLIC ACID. [Concomitant]
     Active Substance: FOLIC ACID
     Indication: PRODUCT USED FOR UNKNOWN INDICATION
     Dosage: 6 DAYS PER WEEK EXCEPT DAY OF METHOTREXATE
     Route: 048
     Dates: start: 20141125
  7. METHOTREXATE SODIUM. [Suspect]
     Active Substance: METHOTREXATE SODIUM
     Indication: RHEUMATOID ARTHRITIS
     Dosage: 6 DOSAGE FORM, 1 IN 1 W
     Route: 048
     Dates: start: 20140818, end: 2014
  8. ARAVA [Suspect]
     Active Substance: LEFLUNOMIDE
     Dosage: VARIOUS (2 DOSAGE FORM, 1 D)
     Dates: start: 20150520, end: 201505

REACTIONS (6)
  - Interstitial lung disease [Unknown]
  - Mycobacterium tuberculosis complex test positive [Unknown]
  - Diarrhoea [Unknown]
  - Rheumatoid arthritis [Not Recovered/Not Resolved]
  - Drug ineffective [Unknown]
  - Breast cancer [Unknown]
